FAERS Safety Report 25078480 (Version 1)
Quarter: 2025Q1

REPORT INFORMATION
  Report Type: Spontaneous
  Country: US (occurrence: None)
  Receive Date: 20250313
  Receipt Date: 20250313
  Transmission Date: 20250409
  Serious: Yes (Death)
  Sender: FDA-CTU
  Company Number: None

PATIENT
  Age: 78 Year
  Sex: Male

DRUGS (15)
  1. TADALAFIL [Suspect]
     Active Substance: TADALAFIL
     Indication: Pulmonary arterial hypertension
     Dosage: FREQUENCY : DAILY;?
     Route: 048
     Dates: start: 20220406, end: 20250210
  2. TADALAFIL [Suspect]
     Active Substance: TADALAFIL
     Indication: Left ventricular dysfunction
  3. FEBUXOSTAT [Concomitant]
     Active Substance: FEBUXOSTAT
  4. CHLOROTHIAZIDE [Concomitant]
     Active Substance: CHLOROTHIAZIDE
  5. RENVELA [Concomitant]
     Active Substance: SEVELAMER CARBONATE
  6. BUMEX [Concomitant]
     Active Substance: BUMETANIDE
  7. POTASSIUM CHLORIDE [Concomitant]
     Active Substance: POTASSIUM CHLORIDE
  8. ALLOPURINOL [Concomitant]
     Active Substance: ALLOPURINOL
  9. JARDIANCE [Concomitant]
     Active Substance: EMPAGLIFLOZIN
  10. INSULIN GLARGINE [Concomitant]
     Active Substance: INSULIN GLARGINE
  11. ZETIA [Concomitant]
     Active Substance: EZETIMIBE
  12. ASPIRIN [Concomitant]
     Active Substance: ASPIRIN
  13. GLIPIZIDE [Concomitant]
     Active Substance: GLIPIZIDE
  14. TYLENOL [Concomitant]
     Active Substance: ACETAMINOPHEN
  15. Breyna HFA [Concomitant]

REACTIONS (2)
  - Cardiac failure [None]
  - Acute kidney injury [None]

NARRATIVE: CASE EVENT DATE: 20250210
